FAERS Safety Report 20834522 (Version 1)
Quarter: 2022Q2

REPORT INFORMATION
  Report Type: Spontaneous
  Country: US (occurrence: None)
  Receive Date: 20220513
  Receipt Date: 20220513
  Transmission Date: 20220720
  Serious: Yes (Death)
  Sender: FDA-Public Use
  Company Number: None

PATIENT
  Age: 77 Year
  Sex: Female

DRUGS (1)
  1. LENALIDOMIDE [Suspect]
     Active Substance: LENALIDOMIDE
     Indication: Diffuse large B-cell lymphoma
     Dosage: 15MG QD ORAL?
     Route: 048
     Dates: start: 20220324, end: 20220401

REACTIONS (4)
  - Aspiration [None]
  - Lymphoma [None]
  - Respiratory disorder [None]
  - Oxygen consumption increased [None]

NARRATIVE: CASE EVENT DATE: 20220424
